FAERS Safety Report 4732056-0 (Version None)
Quarter: 2005Q3

REPORT INFORMATION
  Report Type: 
  Country: None (occurrence: None)
  Receive Date: 20050722
  Receipt Date: 20050222
  Transmission Date: 20060218
  Serious: Yes (Life-Threatening)
  Sender: FDA-Public Use
  Company Number: 2005SP000042

PATIENT
  Age: 6 Year
  Sex: Male
  Weight: 31.7518 kg

DRUGS (1)
  1. XOPENEX [Suspect]
     Indication: WHEEZING
     Dosage: 0.63 MG/3ML;X1;INHALATION
     Route: 055
     Dates: start: 20041225, end: 20041227

REACTIONS (1)
  - BRONCHOSPASM [None]
